FAERS Safety Report 20491950 (Version 15)
Quarter: 2024Q1

REPORT INFORMATION
  Report Type: Report from Study
  Country: BR (occurrence: BR)
  Receive Date: 20220218
  Receipt Date: 20240318
  Transmission Date: 20240409
  Serious: Yes (Hospitalization, Disabling, Other)
  Sender: FDA-Public Use
  Company Number: BR-ABBVIE-22K-020-4281386-00

PATIENT
  Sex: Female
  Weight: 98 kg

DRUGS (16)
  1. RINVOQ [Suspect]
     Active Substance: UPADACITINIB
     Indication: Rheumatoid arthritis
     Route: 048
     Dates: start: 20210409, end: 2022
  2. RINVOQ [Suspect]
     Active Substance: UPADACITINIB
     Indication: Rheumatoid arthritis
     Route: 048
     Dates: start: 2022
  3. METHOTREXATE [Suspect]
     Active Substance: METHOTREXATE
     Indication: Rheumatoid arthritis
     Route: 065
  4. PREDNISONE [Suspect]
     Active Substance: PREDNISONE
     Indication: Product used for unknown indication
     Route: 065
  5. PANTOPRAZOLE [Concomitant]
     Active Substance: PANTOPRAZOLE
     Indication: Gastrointestinal disorder therapy
  6. PANTOPRAZOLE [Concomitant]
     Active Substance: PANTOPRAZOLE
     Indication: Gastrointestinal disorder therapy
  7. DOMPERIDONE [Concomitant]
     Active Substance: DOMPERIDONE
     Indication: Dyspepsia
  8. HYDROCHLOROTHIAZIDE [Concomitant]
     Active Substance: HYDROCHLOROTHIAZIDE
     Indication: Hypertension
  9. IBANDRONATE SODIUM [Concomitant]
     Active Substance: IBANDRONATE SODIUM
     Indication: Osteoporosis
  10. GLYCOPYRRONIUM\INDACATEROL [Concomitant]
     Active Substance: GLYCOPYRRONIUM\INDACATEROL
     Indication: Product used for unknown indication
  11. ESCITALOPRAM [Concomitant]
     Active Substance: ESCITALOPRAM OXALATE
     Indication: Product used for unknown indication
  12. QUETIAPINE [Concomitant]
     Active Substance: QUETIAPINE
     Indication: Product used for unknown indication
     Dosage: 2 PER DAY
  13. FOLIC ACID [Concomitant]
     Active Substance: FOLIC ACID
     Indication: Product used for unknown indication
  14. BECLOMETHASONE DIPROPIONATE [Concomitant]
     Active Substance: BECLOMETHASONE DIPROPIONATE
     Indication: Product used for unknown indication
  15. RIVOTRIL [Concomitant]
     Active Substance: CLONAZEPAM
     Indication: Product used for unknown indication
  16. PAROXETINE [Concomitant]
     Active Substance: PAROXETINE
     Indication: Product used for unknown indication
     Route: 065

REACTIONS (61)
  - COVID-19 [Recovered/Resolved]
  - Head injury [Unknown]
  - Joint injury [Unknown]
  - Cognitive disorder [Recovered/Resolved]
  - Disorientation [Recovered/Resolved]
  - Hallucination, visual [Recovered/Resolved]
  - Nervous system disorder [Recovered/Resolved]
  - Emotional distress [Recovered/Resolved]
  - Mental disorder [Recovered/Resolved]
  - Arrhythmia [Recovering/Resolving]
  - Disorientation [Recovering/Resolving]
  - Blood pressure abnormal [Recovering/Resolving]
  - Pulmonary fibrosis [Not Recovered/Not Resolved]
  - Hospitalisation [Recovered/Resolved]
  - Platelet count decreased [Unknown]
  - Pulmonary fibrosis [Unknown]
  - Blood pressure abnormal [Unknown]
  - Thrombosis [Not Recovered/Not Resolved]
  - Mental disorder [Recovered/Resolved]
  - Therapeutic response unexpected [Unknown]
  - Amnesia [Recovered/Resolved]
  - Tremor [Recovered/Resolved]
  - Emotional disorder [Recovered/Resolved]
  - Chondropathy [Unknown]
  - Hallucination, visual [Unknown]
  - Hallucination, auditory [Unknown]
  - Fall [Unknown]
  - Anxiety [Unknown]
  - Weight decreased [Unknown]
  - Foot deformity [Unknown]
  - Skin discolouration [Unknown]
  - Hypertension [Recovering/Resolving]
  - Pain in extremity [Unknown]
  - Atrophy [Unknown]
  - Body height decreased [Unknown]
  - Arthritis [Unknown]
  - Wound [Unknown]
  - Swelling [Unknown]
  - Wound complication [Unknown]
  - Tachypnoea [Recovered/Resolved]
  - Decreased appetite [Recovered/Resolved]
  - Platelet count decreased [Unknown]
  - Blood pressure fluctuation [Recovering/Resolving]
  - Dengue fever [Recovered/Resolved]
  - Pain in extremity [Recovered/Resolved]
  - Dysgeusia [Recovered/Resolved]
  - Ageusia [Recovered/Resolved]
  - Decreased appetite [Recovered/Resolved]
  - Osteoarthritis [Unknown]
  - Unevaluable event [Not Recovered/Not Resolved]
  - Lung induration [Unknown]
  - Nasopharyngitis [Unknown]
  - Emphysema [Unknown]
  - Allergic bronchitis [Unknown]
  - Pyrexia [Recovered/Resolved]
  - Urinary tract infection [Recovered/Resolved]
  - Arthropathy [Unknown]
  - Arrhythmia [Recovered/Resolved]
  - Rheumatic disorder [Unknown]
  - Blood pressure increased [Unknown]
  - Hypertension [Unknown]

NARRATIVE: CASE EVENT DATE: 20210101
